FAERS Safety Report 25972999 (Version 1)
Quarter: 2025Q4

REPORT INFORMATION
  Report Type: Spontaneous
  Country: US (occurrence: US)
  Receive Date: 20251029
  Receipt Date: 20251029
  Transmission Date: 20260117
  Serious: No
  Sender: AMGEN
  Company Number: US-AMGEN-USASP2025212951

PATIENT

DRUGS (3)
  1. TAVNEOS [Suspect]
     Active Substance: AVACOPAN
     Indication: Product used for unknown indication
     Dosage: UNK,  OFF LABEL USE DOSES
     Route: 065
  2. TAVNEOS [Suspect]
     Active Substance: AVACOPAN
     Dosage: UNK, DOSE RECOMMENDED BY THE FDA APPROVED PACKAGE INSERT
     Route: 065
  3. TAVNEOS [Suspect]
     Active Substance: AVACOPAN
     Dosage: UNK, LOWER DOSE OF TAVNEOS
     Route: 065

REACTIONS (2)
  - Discomfort [Unknown]
  - Off label use [Unknown]
